FAERS Safety Report 5120587-3 (Version None)
Quarter: 2006Q4

REPORT INFORMATION
  Report Type: 
  Country: None (occurrence: None)
  Receive Date: 20061004
  Receipt Date: 20060925
  Transmission Date: 20070319
  Serious: Yes (Other)
  Sender: FDA-Public Use
  Company Number: 2006AP04521

PATIENT
  Age: 50 Year
  Sex: Female

DRUGS (2)
  1. ZOMIG RM [Suspect]
     Indication: MIGRAINE
     Route: 048
     Dates: start: 20060912
  2. DEPROMEL [Suspect]
     Indication: DEPRESSION
     Route: 048

REACTIONS (1)
  - LOSS OF CONSCIOUSNESS [None]
